FAERS Safety Report 18369460 (Version 2)
Quarter: 2020Q4

REPORT INFORMATION
  Report Type: Report from Study
  Country: None (occurrence: US)
  Receive Date: 20201012
  Receipt Date: 20201210
  Transmission Date: 20210114
  Serious: Yes (Hospitalization)
  Sender: FDA-Public Use
  Company Number: US-ABBVIE-20K-163-3599858-00

PATIENT
  Age: 55 Year
  Sex: Female

DRUGS (1)
  1. HUMIRA [Suspect]
     Active Substance: ADALIMUMAB
     Indication: RHEUMATOID ARTHRITIS
     Dosage: CITRATE FREE
     Route: 058
     Dates: start: 20200323, end: 2020

REACTIONS (3)
  - Vena cava filter insertion [Unknown]
  - Intracranial aneurysm [Recovered/Resolved with Sequelae]
  - Thrombosis [Unknown]

NARRATIVE: CASE EVENT DATE: 2020
